FAERS Safety Report 4317741-7 (Version None)
Quarter: 2004Q1

REPORT INFORMATION
  Report Type: 
  Country: None (occurrence: None)
  Receive Date: 20040315
  Receipt Date: 20040303
  Transmission Date: 20041129
  Serious: Yes (Other)
  Sender: FDA-Public Use
  Company Number: PHHO2004CH03334

PATIENT
  Age: 54 Year
  Sex: Male

DRUGS (5)
  1. METHYLPHENIDATE HCL [Suspect]
     Dosage: 10 MG, UNK
     Dates: start: 20031204
  2. REMERON [Suspect]
     Indication: KORSAKOFF'S PSYCHOSIS ALCOHOLIC
     Dosage: 15 MG, QD
     Dates: start: 20031119, end: 20031204
  3. BECOZYM [Concomitant]
     Indication: POLYNEUROPATHY
     Dates: start: 20030909
  4. BENERVA [Concomitant]
     Indication: POLYNEUROPATHY
     Dosage: 300 MG, QD
     Dates: start: 20030909
  5. VALPROIC ACID [Concomitant]
     Dosage: 900 MG, QD
     Dates: start: 20031111, end: 20031204

REACTIONS (4)
  - AGGRESSION [None]
  - DRUG LEVEL DECREASED [None]
  - DRUG LEVEL INCREASED [None]
  - IRRITABILITY [None]
